FAERS Safety Report 10441165 (Version 3)
Quarter: 2015Q1

REPORT INFORMATION
  Report Type: Spontaneous
  Country: US (occurrence: None)
  Receive Date: 20140905
  Receipt Date: 20150202
  Transmission Date: 20150720
  Serious: Yes (Disabling)
  Sender: FDA-Public Use
  Company Number: 2014-US-010998

PATIENT
  Sex: Female

DRUGS (1)
  1. XYREM [Suspect]
     Active Substance: SODIUM OXYBATE
     Indication: ANXIETY
     Route: 048
     Dates: start: 201402, end: 201402

REACTIONS (2)
  - Off label use [None]
  - Disability [None]

NARRATIVE: CASE EVENT DATE: 2014
